FAERS Safety Report 12579891 (Version 3)
Quarter: 2016Q4

REPORT INFORMATION
  Report Type: Report from Study
  Country: PL (occurrence: PL)
  Receive Date: 20160721
  Receipt Date: 20161102
  Transmission Date: 20170207
  Serious: Yes (Hospitalization)
  Sender: FDA-Public Use
  Company Number: PL-TEVA-664070ISR

PATIENT
  Age: 50 Year
  Sex: Female
  Weight: 78 kg

DRUGS (12)
  1. IPRES LONG [Concomitant]
     Indication: HYPERTENSION
     Dosage: 1.5 MILLIGRAM DAILY;
     Route: 048
     Dates: start: 201602, end: 20160521
  2. BETO ZK [Concomitant]
     Active Substance: METOPROLOL SUCCINATE
     Indication: HYPERTENSION
     Dosage: 50 MILLIGRAM DAILY; END DATE: ONGOING
     Route: 048
     Dates: start: 201512
  3. DOXANORM [Concomitant]
     Indication: HYPERTENSION
     Dosage: 2 MILLIGRAM DAILY; END DATE: ONGOING
     Route: 048
     Dates: start: 201512
  4. NEBILET [Concomitant]
     Active Substance: NEBIVOLOL
     Indication: HYPERTENSION
     Dosage: 5 MILLIGRAM DAILY; END DATE: ONGOING
     Route: 048
     Dates: start: 20160602
  5. TIALORID MITE [Concomitant]
     Indication: HYPERTENSION
     Dosage: 27.5 MILLIGRAM DAILY;
     Route: 048
     Dates: start: 201512, end: 20160521
  6. TRIFAS COR [Concomitant]
     Indication: HYPERTENSION
     Dosage: 5 MILLIGRAM DAILY; END DATE: ONGOING
     Route: 048
     Dates: start: 20150602
  7. TRAMAL [Concomitant]
     Active Substance: TRAMADOL
     Dosage: 300 MILLIGRAM DAILY;
     Route: 058
     Dates: start: 20160522, end: 20160601
  8. KALIPOZ [Concomitant]
     Active Substance: POTASSIUM CHLORIDE
     Indication: PROPHYLAXIS
     Dosage: 782 MILLIGRAM DAILY; END DATE: ONGOING
     Route: 048
     Dates: start: 20160602
  9. PRESTARIUM [Concomitant]
     Active Substance: PERINDOPRIL
     Indication: HYPERTENSION
     Dosage: 10 MILLIGRAM DAILY; END DATE: ONGOING
     Route: 048
     Dates: start: 20150602
  10. TRAMAL [Concomitant]
     Active Substance: TRAMADOL
     Indication: PAIN IN EXTREMITY
     Dosage: 300 MILLIGRAM DAILY;
     Route: 048
     Dates: start: 201601, end: 20160521
  11. COPAXONE [Suspect]
     Active Substance: GLATIRAMER ACETATE
     Indication: RELAPSING-REMITTING MULTIPLE SCLEROSIS
     Dosage: COPAXONE 40 MG/ML
     Route: 058
     Dates: start: 20160502, end: 20160523
  12. KALIPOZ [Concomitant]
     Active Substance: POTASSIUM CHLORIDE
     Dosage: 2346 MILLIGRAM DAILY; END DATE: ONGOING
     Route: 048
     Dates: start: 20160522, end: 20160601

REACTIONS (3)
  - Acute kidney injury [Recovered/Resolved]
  - Urinary tract infection [Recovered/Resolved]
  - Escherichia sepsis [Recovered/Resolved]

NARRATIVE: CASE EVENT DATE: 20160518
